FAERS Safety Report 9611184 (Version 2)
Quarter: 2013Q4

REPORT INFORMATION
  Report Type: Report from Study
  Country: CA (occurrence: CA)
  Receive Date: 20131009
  Receipt Date: 20131009
  Transmission Date: 20140711
  Serious: Yes (Other)
  Sender: FDA-Public Use
  Company Number: CA-ROCHE-1237211

PATIENT
  Sex: Female
  Weight: 97 kg

DRUGS (8)
  1. ACTEMRA [Suspect]
     Indication: RHEUMATOID ARTHRITIS
     Route: 042
     Dates: start: 20121213
  2. METHOTREXATE [Concomitant]
  3. ARAVA [Concomitant]
  4. DETROL [Concomitant]
  5. FOLIC ACID [Concomitant]
  6. ADVIL [Concomitant]
  7. PERCOCET [Concomitant]
     Dosage: PRN
     Route: 065
  8. COVERSYL [Concomitant]

REACTIONS (4)
  - Joint effusion [Not Recovered/Not Resolved]
  - Tooth extraction [Unknown]
  - Arthralgia [Not Recovered/Not Resolved]
  - Arthralgia [Not Recovered/Not Resolved]
